FAERS Safety Report 25985978 (Version 1)
Quarter: 2025Q4

REPORT INFORMATION
  Report Type: Spontaneous
  Country: EU (occurrence: EU)
  Receive Date: 20251031
  Receipt Date: 20251031
  Transmission Date: 20260117
  Serious: Yes (Hospitalization)
  Sender: ANI
  Company Number: EU-ANIPHARMA-2025-DE-000068

PATIENT
  Age: 86 Year
  Sex: Female
  Weight: 60 kg

DRUGS (8)
  1. ARIMIDEX [Suspect]
     Active Substance: ANASTROZOLE
     Indication: Breast cancer
     Dosage: 2.5 MILLIGRAM, QD
     Route: 048
     Dates: start: 20210805, end: 20241017
  2. LETROZOLE [Suspect]
     Active Substance: LETROZOLE
     Dosage: 2.5 MILLIGRAM, QD
     Route: 048
     Dates: start: 20211028
  3. PALBOCICLIB [Suspect]
     Active Substance: PALBOCICLIB
     Dosage: 125 MILLIGRAM, QD (DAILY FROM DAY 1 TO DAY 21 EVERY 28 DAY CYCLE);
     Route: 048
     Dates: start: 20210805
  4. PANCREATIN [Concomitant]
     Active Substance: PANCRELIPASE
     Dates: start: 1991
  5. VITAMIN D [Concomitant]
     Active Substance: VITAMIN D NOS
     Dates: start: 2008
  6. BISOPROLOL [Concomitant]
     Active Substance: BISOPROLOL
     Dates: start: 2010
  7. CANDESARTAN [Concomitant]
     Active Substance: CANDESARTAN
     Dates: start: 2012
  8. MIRTAZAPINE [Concomitant]
     Active Substance: MIRTAZAPINE
     Dates: start: 2016

REACTIONS (1)
  - Pancreatitis chronic [Recovered/Resolved]
